FAERS Safety Report 20826845 (Version 1)
Quarter: 2022Q2

REPORT INFORMATION
  Report Type: Spontaneous
  Country: BR (occurrence: None)
  Receive Date: 20220513
  Receipt Date: 20220513
  Transmission Date: 20220720
  Serious: Yes (Other)
  Sender: FDA-Public Use
  Company Number: BR-ROCHE-3096861

PATIENT
  Sex: Male

DRUGS (1)
  1. RIVOTRIL [Suspect]
     Active Substance: CLONAZEPAM
     Indication: Product used for unknown indication
     Dosage: 2 MG (30 TABLETS)
     Route: 065

REACTIONS (3)
  - Drug dependence [Unknown]
  - Malaise [Unknown]
  - Product physical issue [Unknown]
